FAERS Safety Report 11345040 (Version 1)
Quarter: 2015Q3

REPORT INFORMATION
  Report Type: Spontaneous
  Country: US (occurrence: US)
  Receive Date: 20150806
  Receipt Date: 20150806
  Transmission Date: 20151125
  Serious: Yes (Other)
  Sender: FDA-Public Use
  Company Number: CHPA2015US009133

PATIENT
  Age: 82 Year
  Sex: Female

DRUGS (1)
  1. PERDIEM [Suspect]
     Active Substance: SENNOSIDES
     Indication: CONSTIPATION
     Dosage: 2 DF, DAY
     Route: 048

REACTIONS (3)
  - Diverticulitis [Not Recovered/Not Resolved]
  - Thrombosis [Recovered/Resolved]
  - Constipation [Not Recovered/Not Resolved]

NARRATIVE: CASE EVENT DATE: 2013
